FAERS Safety Report 13455484 (Version 2)
Quarter: 2017Q2

REPORT INFORMATION
  Report Type: Spontaneous
  Country: US (occurrence: US)
  Receive Date: 20170419
  Receipt Date: 20170421
  Transmission Date: 20170830
  Serious: No
  Sender: FDA-Public Use
  Company Number: US-PFIZER INC-2017169127

PATIENT
  Age: 58 Year
  Sex: Male
  Weight: 105 kg

DRUGS (1)
  1. MARCAINE [Suspect]
     Active Substance: BUPIVACAINE HYDROCHLORIDE
     Indication: KNEE ARTHROPLASTY
     Dosage: UNK

REACTIONS (1)
  - Drug ineffective [Unknown]
